FAERS Safety Report 6863535-8 (Version None)
Quarter: 2010Q3

REPORT INFORMATION
  Report Type: 
  Country: None (occurrence: None)
  Receive Date: 20100721
  Receipt Date: 20080305
  Transmission Date: 20110219
  Serious: Yes (Other)
  Sender: FDA-Public Use
  Company Number: US-PFIZER INC-2008022064

PATIENT
  Age: 53 Year
  Sex: Male

DRUGS (8)
  1. CHANTIX [Suspect]
     Indication: SMOKING CESSATION THERAPY
     Dates: start: 20080101, end: 20080101
  2. SEROQUEL [Concomitant]
  3. EFFEXOR [Concomitant]
  4. NEURONTIN [Concomitant]
  5. LASIX [Concomitant]
  6. NORTAB [Concomitant]
  7. ACETYLSALICYLIC ACID [Concomitant]
  8. FEXOFENADINE [Concomitant]

REACTIONS (2)
  - ABDOMINAL PAIN [None]
  - SUICIDAL BEHAVIOUR [None]
